FAERS Safety Report 9983485 (Version 4)
Quarter: 2014Q2

REPORT INFORMATION
  Report Type: Report from Study
  Country: US (occurrence: US)
  Receive Date: 20140307
  Receipt Date: 20140425
  Transmission Date: 20141212
  Serious: Yes (Other)
  Sender: FDA-Public Use
  Company Number: US-SA-2014SA016244

PATIENT
  Age: 37 Year
  Sex: Female

DRUGS (7)
  1. AUBAGIO [Suspect]
     Indication: MULTIPLE SCLEROSIS
     Route: 048
     Dates: start: 20131213
  2. TOPAMAX [Concomitant]
     Indication: HEADACHE
     Dates: start: 2008
  3. REQUIP [Concomitant]
     Indication: RESTLESS LEGS SYNDROME
     Dates: start: 2012
  4. MILNACIPRAN [Concomitant]
     Indication: DEPRESSION
     Dates: start: 2012
  5. MILNACIPRAN [Concomitant]
     Indication: ANXIETY
     Dates: start: 2012
  6. CLONIDINE [Concomitant]
     Indication: HYPERTENSION
     Dates: start: 2010
  7. LYRICA [Concomitant]

REACTIONS (11)
  - Convulsion [Not Recovered/Not Resolved]
  - Injury [Not Recovered/Not Resolved]
  - Abdominal discomfort [Not Recovered/Not Resolved]
  - Pain [Not Recovered/Not Resolved]
  - Apparent death [Unknown]
  - Depressed mood [Not Recovered/Not Resolved]
  - Decreased appetite [Not Recovered/Not Resolved]
  - Aphagia [Not Recovered/Not Resolved]
  - Alopecia [Not Recovered/Not Resolved]
  - Nausea [Not Recovered/Not Resolved]
  - Headache [Not Recovered/Not Resolved]
